FAERS Safety Report 7246397-9 (Version None)
Quarter: 2011Q1

REPORT INFORMATION
  Report Type: 
  Country: None (occurrence: None)
  Receive Date: 20110126
  Receipt Date: 20100201
  Transmission Date: 20110831
  Serious: No
  Sender: FDA-Public Use
  Company Number: US-BAUSCH-2010BL000597

PATIENT
  Age: 76 Year
  Sex: Female

DRUGS (2)
  1. ZYLET [Suspect]
     Indication: BLEPHARITIS
     Route: 047
     Dates: start: 20091101, end: 20091101
  2. ACTONEL /USA/ [Concomitant]
     Indication: OSTEOPOROSIS

REACTIONS (2)
  - ABNORMAL SENSATION IN EYE [None]
  - LACRIMATION INCREASED [None]
